FAERS Safety Report 8334106-1 (Version None)
Quarter: 2012Q2

REPORT INFORMATION
  Report Type: 
  Country: None (occurrence: None)
  Receive Date: 20120503
  Receipt Date: 20110222
  Transmission Date: 20120825
  Serious: No
  Sender: FDA-Public Use
  Company Number: US-TEVA-2011000861

PATIENT
  Sex: Female
  Weight: 63.56 kg

DRUGS (14)
  1. NUVIGIL [Suspect]
     Indication: FATIGUE
     Dosage: 300 MILLIGRAM;
     Route: 048
     Dates: start: 20100101
  2. TEMAZOPINE [Concomitant]
     Dates: start: 20070101
  3. FLURAZEPAM [Concomitant]
     Dates: start: 20070101
  4. MELATONIN [Concomitant]
     Dates: start: 20080101
  5. LISINOPRIL [Concomitant]
     Dates: start: 20080101
  6. ZOCOR [Concomitant]
     Dates: start: 20080101
  7. SOMA [Concomitant]
     Dates: start: 20070101
  8. FLEXERIL [Concomitant]
     Dates: start: 20100101
  9. LEVOTHYROXINE SODIUM [Concomitant]
     Dates: start: 20080101
  10. MELATONIN [Concomitant]
     Dates: start: 20080101
  11. ZOCOR [Concomitant]
     Dates: start: 20080101
  12. LISINOPRIL [Concomitant]
     Dates: start: 20080101
  13. NUVIGIL [Suspect]
     Dosage: 500 MILLIGRAM;
     Route: 048
  14. LEVOTHYROXINE SODIUM [Concomitant]

REACTIONS (2)
  - DRUG INEFFECTIVE [None]
  - DRUG PRESCRIBING ERROR [None]
